FAERS Safety Report 10182816 (Version 1)
Quarter: 2014Q2

REPORT INFORMATION
  Report Type: Spontaneous
  Country: US (occurrence: US)
  Receive Date: 20140520
  Receipt Date: 20140520
  Transmission Date: 20141212
  Serious: Yes (Other)
  Sender: FDA-Public Use
  Company Number: US-SA-2014SA062197

PATIENT
  Age: 81 Year
  Sex: Female

DRUGS (4)
  1. PLAVIX [Suspect]
     Indication: MYOCARDIAL INFARCTION
     Route: 065
     Dates: start: 20140506
  2. PROPOFOL [Concomitant]
  3. HEPARIN [Concomitant]
  4. ASPIRIN [Concomitant]

REACTIONS (1)
  - Atrial fibrillation [Recovering/Resolving]
